FAERS Safety Report 5194273-8 (Version None)
Quarter: 2006Q4

REPORT INFORMATION
  Report Type: 
  Country: None (occurrence: None)
  Receive Date: 20061228
  Receipt Date: 20050804
  Transmission Date: 20070319
  Serious: Yes (Hospitalization)
  Sender: FDA-Public Use
  Company Number: JP-ABBOTT-05P-087-0307776-00

PATIENT
  Sex: Female

DRUGS (20)
  1. NORVIR [Suspect]
     Indication: HIV INFECTION
     Route: 048
     Dates: start: 20040401
  2. TENOFOVIR [Suspect]
     Indication: HIV INFECTION
     Route: 048
     Dates: start: 20040401, end: 20050614
  3. ATAZANAVIR [Suspect]
     Indication: HIV INFECTION
     Route: 048
     Dates: start: 20040401
  4. LAMIVUDINE [Suspect]
     Indication: HIV INFECTION
     Route: 048
     Dates: start: 20040401, end: 20050614
  5. CANDESARTAN CILEXETIL [Concomitant]
     Indication: HYPERTENSION
     Route: 048
     Dates: start: 20040401
  6. WARFARIN SODIUM [Concomitant]
     Indication: ARRHYTHMIA
     Route: 048
     Dates: start: 20050614
  7. ISOSORBIDE DINITRATE [Concomitant]
     Indication: ARRHYTHMIA
     Route: 061
     Dates: start: 20040401
  8. NIFEDIPINE [Concomitant]
     Indication: HYPERTENSION
     Route: 048
     Dates: start: 20040401
  9. NIFEDIPINE [Concomitant]
     Indication: HYPERTENSIVE EMERGENCY
     Dates: start: 20040928, end: 20040929
  10. CIPRALAN [Concomitant]
     Indication: HYPERTENSION
     Route: 048
     Dates: start: 20040401, end: 20050905
  11. CIPRALAN [Concomitant]
     Indication: ARRHYTHMIA
  12. ASPIRIN [Concomitant]
     Indication: ARRHYTHMIA
     Route: 048
     Dates: start: 20040401
  13. BACTRIM [Concomitant]
     Indication: ANTIFUNGAL PROPHYLAXIS
     Route: 048
     Dates: start: 20040401, end: 20050905
  14. DILTIAZEM HYDROCHLORIDE [Concomitant]
     Indication: HYPERTENSION
     Route: 048
     Dates: start: 20041005
  15. EMTRICITABIN/TENOFOVIR [Concomitant]
     Indication: HIV INFECTION
     Route: 048
     Dates: start: 20050615
  16. NICARDIPINE HYDROCHLORIDE [Concomitant]
     Indication: HYPERTENSION
     Route: 048
     Dates: start: 20040401, end: 20050614
  17. FERROUS FUMARATE [Concomitant]
     Indication: ANAEMIA
     Route: 048
     Dates: start: 20041022, end: 20050516
  18. NITROGLYCERIN [Concomitant]
     Indication: HYPERTENSION
     Route: 061
     Dates: start: 20050517
  19. FAMOTIDINE [Concomitant]
     Indication: GASTRIC ULCER
     Route: 048
     Dates: start: 20050614
  20. SULPIRIDE [Concomitant]
     Indication: GASTRIC ULCER
     Route: 048
     Dates: start: 20050614

REACTIONS (2)
  - CHEST PAIN [None]
  - IRON DEFICIENCY ANAEMIA [None]
